FAERS Safety Report 5929176-1 (Version None)
Quarter: 2008Q4

REPORT INFORMATION
  Report Type: 
  Country: None (occurrence: None)
  Receive Date: 20081023
  Receipt Date: 20081023
  Transmission Date: 20090506
  Serious: Yes (Hospitalization)
  Sender: FDA-Public Use
  Company Number: None

PATIENT
  Age: 36 Year
  Sex: Female

DRUGS (2)
  1. CEFADROXIL [Suspect]
     Indication: DEVICE RELATED INFECTION
  2. CEFADROXIL [Suspect]
     Indication: STAPHYLOCOCCAL INFECTION

REACTIONS (3)
  - ARTHRALGIA [None]
  - PYREXIA [None]
  - RASH MORBILLIFORM [None]
